FAERS Safety Report 19881844 (Version 2)
Quarter: 2021Q3

REPORT INFORMATION
  Report Type: Spontaneous
  Country: US (occurrence: US)
  Receive Date: 20210924
  Receipt Date: 20210928
  Transmission Date: 20211014
  Serious: No
  Sender: FDA-Public Use
  Company Number: US-MYLANLABS-2021M1064250

PATIENT
  Age: 62 Year
  Sex: Female
  Weight: 103 kg

DRUGS (2)
  1. ADVIL (MEFENAMIC ACID) [Concomitant]
     Active Substance: MEFENAMIC ACID
     Dosage: UNK
  2. LEVOTHYROXINE SODIUM TABLETS, USP [Suspect]
     Active Substance: LEVOTHYROXINE SODIUM
     Indication: THYROIDECTOMY
     Dosage: 2 TABLETS AND HALF PER DAY
     Route: 048
     Dates: start: 20210809

REACTIONS (24)
  - Tinnitus [Not Recovered/Not Resolved]
  - Lethargy [Not Recovered/Not Resolved]
  - Limb discomfort [Not Recovered/Not Resolved]
  - Gait inability [Not Recovered/Not Resolved]
  - Alopecia [Not Recovered/Not Resolved]
  - Product quality issue [Not Recovered/Not Resolved]
  - Hypoaesthesia [Not Recovered/Not Resolved]
  - Vision blurred [Not Recovered/Not Resolved]
  - Bladder disorder [Not Recovered/Not Resolved]
  - Taste disorder [Not Recovered/Not Resolved]
  - Drug ineffective [Recovered/Resolved]
  - Muscle spasms [Not Recovered/Not Resolved]
  - Arthropathy [Not Recovered/Not Resolved]
  - Abdominal distension [Not Recovered/Not Resolved]
  - Affective disorder [Not Recovered/Not Resolved]
  - Rash [Not Recovered/Not Resolved]
  - Peripheral swelling [Not Recovered/Not Resolved]
  - Thirst [Not Recovered/Not Resolved]
  - Pruritus [Not Recovered/Not Resolved]
  - Fatigue [Not Recovered/Not Resolved]
  - Abdominal pain upper [Not Recovered/Not Resolved]
  - Arthritis [Unknown]
  - Paraesthesia [Not Recovered/Not Resolved]
  - Blood pressure increased [Not Recovered/Not Resolved]

NARRATIVE: CASE EVENT DATE: 20210809
